FAERS Safety Report 18559372 (Version 3)
Quarter: 2021Q1

REPORT INFORMATION
  Report Type: Spontaneous
  Country: FR (occurrence: FR)
  Receive Date: 20201130
  Receipt Date: 20210113
  Transmission Date: 20210419
  Serious: Yes (Death)
  Sender: FDA-Public Use
  Company Number: FR-TEVA-2020-FR-1853296

PATIENT
  Age: 37 Year
  Sex: Male
  Weight: 87 kg

DRUGS (9)
  1. MIANSERINE (CHLORHYDRATE DE) [Suspect]
     Active Substance: MIANSERIN HYDROCHLORIDE
     Indication: DEPRESSION
     Dosage: UNIT DOSE : 60 MG
     Route: 048
     Dates: start: 2019, end: 20201102
  2. ZOPICLONE [Suspect]
     Active Substance: ZOPICLONE
     Indication: INSOMNIA
     Dosage: UNIT DOSE : 7.5 MG
     Route: 048
     Dates: start: 20201030, end: 20201102
  3. SERTRALINE (CHLORHYDRATE DE) [Suspect]
     Active Substance: SERTRALINE HYDROCHLORIDE
     Indication: DEPRESSION
     Dosage: UNIT DOSE : 100 MG
     Route: 048
     Dates: start: 2019, end: 20201102
  4. PRINCI B (PYRIDOXINE\THIAMINE) [Suspect]
     Active Substance: PYRIDOXINE\THIAMINE
     Indication: ALCOHOL DETOXIFICATION
     Dosage: UNIT DOSE : 6 DOSAGE FORMS
     Route: 048
     Dates: start: 20201027, end: 20201102
  5. DIAZEPAM. [Suspect]
     Active Substance: DIAZEPAM
     Indication: ALCOHOL DETOXIFICATION
     Dosage: UNIT DOSE : 1 DOSAGE FORMS
     Route: 048
     Dates: start: 20201028, end: 20201102
  6. SERESTA 50 MG, COMPRIME SECABLE [Suspect]
     Active Substance: OXAZEPAM
     Indication: ALCOHOL DETOXIFICATION
     Dosage: UNIT DOSE : 200 MG?SERESTA 50 MG, COMPRIME SECABLE
     Route: 048
     Dates: start: 2019, end: 20201102
  7. GAVISCON [Suspect]
     Active Substance: ALUMINUM HYDROXIDE\MAGNESIUM CARBONATE
     Indication: GASTROOESOPHAGEAL REFLUX DISEASE
     Dosage: UNIT DOSE : 3 DOSAGE FORMS
     Route: 048
     Dates: start: 2019, end: 20201102
  8. METHADONE [Suspect]
     Active Substance: METHADONE HYDROCHLORIDE
     Indication: DRUG DEPENDENCE
     Route: 048
     Dates: start: 2020, end: 20201102
  9. PANTOPRAZOLE [Suspect]
     Active Substance: PANTOPRAZOLE
     Indication: GASTROOESOPHAGEAL REFLUX DISEASE
     Dosage: UNIT DOSE : 20 MG
     Route: 048
     Dates: start: 20201028, end: 20201102

REACTIONS (2)
  - Coma [Fatal]
  - Cardio-respiratory arrest [Fatal]

NARRATIVE: CASE EVENT DATE: 20201102
